FAERS Safety Report 9181291 (Version 2)
Quarter: 2013Q1

REPORT INFORMATION
  Report Type: Spontaneous
  Country: US (occurrence: US)
  Receive Date: 20130322
  Receipt Date: 20130322
  Transmission Date: 20140127
  Serious: No
  Sender: FDA-Public Use
  Company Number: US-MYLANLABS-2013S1002390

PATIENT
  Sex: Female
  Weight: 68.04 kg

DRUGS (6)
  1. EMSAM [Suspect]
     Indication: DEPRESSION
     Route: 062
  2. TEMAZEPAM [Concomitant]
  3. MEDROXYPROGESTERON [Concomitant]
  4. ESTROGEN [Concomitant]
  5. PANTOPRAZOLE [Concomitant]
  6. LAMICTAL [Concomitant]

REACTIONS (3)
  - Dermatitis allergic [Recovered/Resolved]
  - Rash [Recovered/Resolved]
  - Application site reaction [Recovered/Resolved]
